FAERS Safety Report 6680749-0 (Version None)
Quarter: 2010Q2

REPORT INFORMATION
  Report Type: 
  Country: None (occurrence: None)
  Receive Date: 20100413
  Receipt Date: 20100413
  Transmission Date: 20101027
  Serious: No
  Sender: FDA-Public Use
  Company Number: None

PATIENT
  Age: 61 Year
  Sex: Female
  Weight: 55.34 kg

DRUGS (1)
  1. CHANTIX [Suspect]
     Dosage: 1 MG BID PO
     Route: 048
     Dates: start: 20090930, end: 20100217

REACTIONS (1)
  - NAUSEA [None]
